FAERS Safety Report 4576118-X (Version None)
Quarter: 2005Q1

REPORT INFORMATION
  Report Type: 
  Country: None (occurrence: None)
  Receive Date: 20050209
  Receipt Date: 20050128
  Transmission Date: 20050727
  Serious: Yes (Other)
  Sender: FDA-Public Use
  Company Number: US-JNJFOC-20050200306

PATIENT
  Sex: Male
  Weight: 2.1 kg

DRUGS (3)
  1. REMICADE [Suspect]
  2. REMICADE [Suspect]
     Indication: CROHN'S DISEASE
  3. PENTASA [Concomitant]

REACTIONS (1)
  - SMALL FOR DATES BABY [None]
